FAERS Safety Report 8026411-3 (Version None)
Quarter: 2012Q1

REPORT INFORMATION
  Report Type: 
  Country: None (occurrence: None)
  Receive Date: 20120105
  Receipt Date: 20120103
  Transmission Date: 20120608
  Serious: Yes (Hospitalization)
  Sender: FDA-Public Use
  Company Number: FR-MERCK-1112FRA00009

PATIENT
  Age: 47 Year
  Sex: Male
  Weight: 88 kg

DRUGS (5)
  1. JANUMET [Suspect]
     Route: 048
     Dates: end: 20110101
  2. METFORMIN [Concomitant]
     Route: 048
  3. GLIMEPIRIDE [Concomitant]
     Route: 048
  4. AMLODIPINE BESYLATE AND ATORVASTATIN CALCIUM [Concomitant]
     Route: 048
  5. HYDROCHLOROTHIAZIDE AND RAMIPRIL [Concomitant]
     Route: 048

REACTIONS (1)
  - ARTHRALGIA [None]
